FAERS Safety Report 14010432 (Version 2)
Quarter: 2017Q4

REPORT INFORMATION
  Report Type: Spontaneous
  Country: US (occurrence: US)
  Receive Date: 20170926
  Receipt Date: 20171020
  Transmission Date: 20180321
  Serious: Yes (Disabling, Other)
  Sender: FDA-Public Use
  Company Number: US-DRREDDYS-USA/USA/17/0093562

PATIENT
  Age: 56 Year
  Sex: Female

DRUGS (2)
  1. NICOTINE. [Suspect]
     Active Substance: NICOTINE
     Indication: SMOKING CESSATION THERAPY
     Route: 065
  2. NICOTINE. [Suspect]
     Active Substance: NICOTINE
     Route: 065

REACTIONS (11)
  - Tendon injury [Unknown]
  - Expired product administered [Unknown]
  - Treatment noncompliance [Unknown]
  - Nicotine dependence [Unknown]
  - Bedridden [Unknown]
  - Product quality issue [Unknown]
  - Foot fracture [Unknown]
  - Walking aid user [Unknown]
  - Fall [Unknown]
  - Limb crushing injury [Unknown]
  - Overdose [Unknown]

NARRATIVE: CASE EVENT DATE: 201611
